FAERS Safety Report 8208320-X (Version None)
Quarter: 2012Q1

REPORT INFORMATION
  Report Type: 
  Country: None (occurrence: None)
  Receive Date: 20120314
  Receipt Date: 20120312
  Transmission Date: 20120608
  Serious: Yes (Other)
  Sender: FDA-Public Use
  Company Number: PHHY2012NL015582

PATIENT
  Sex: Male

DRUGS (11)
  1. DEXAMETHASONE [Concomitant]
     Dosage: 3 U, QD
  2. OXYCONTIN [Concomitant]
     Dosage: 2 DF, BID
  3. DICLOFENAC SODIUM [Concomitant]
     Dosage: 3 DF, QD
  4. FUROSEMIDE [Concomitant]
     Dosage: 1 DF, QD
  5. MAGNESIUM HYDROXIDE TAB [Concomitant]
     Dosage: 3 DF, QD
  6. ZOMETA [Suspect]
     Dosage: 4MG/100ML (OVER THE COURSE OF 20 MINUTES) ONCE PER 21 DAYS
     Route: 042
     Dates: start: 20120223, end: 20120223
  7. METOPROLOL SUCCINATE [Concomitant]
     Dosage: 0.5 DF, UNK
  8. ZOMETA [Suspect]
     Indication: LUNG CANCER METASTATIC
     Dosage: 4MG/100ML (OVER THE COURSE OF 20 MINUTES) ONCE PER 21 DAYS
     Route: 042
     Dates: start: 20120202
  9. ACETAMINOPHEN [Concomitant]
     Dosage: 4 DF, BID
  10. OMEPRAZOLE [Concomitant]
     Dosage: 1 DF, QD
  11. ACENOCOUMAROL [Concomitant]

REACTIONS (3)
  - DYSPNOEA [None]
  - GENERAL PHYSICAL HEALTH DETERIORATION [None]
  - PAIN IN EXTREMITY [None]
